FAERS Safety Report 9407839 (Version 1)
Quarter: 2013Q3

REPORT INFORMATION
  Report Type: Spontaneous
  Country: US (occurrence: US)
  Receive Date: 20130718
  Receipt Date: 20130718
  Transmission Date: 20140515
  Serious: Yes (Other)
  Sender: FDA-Public Use
  Company Number: US-TARO-2013P1011778

PATIENT
  Sex: Female

DRUGS (3)
  1. PHENYTOIN [Suspect]
  2. PHENYTOIN [Suspect]
  3. PHENYTOIN [Suspect]

REACTIONS (2)
  - Convulsion [Unknown]
  - Drug effect decreased [Unknown]
